FAERS Safety Report 16439830 (Version 1)
Quarter: 2019Q2

REPORT INFORMATION
  Report Type: Spontaneous
  Country: US (occurrence: US)
  Receive Date: 20190508
  Receipt Date: 20190508
  Transmission Date: 20190711
  Serious: No
  Sender: FDA-Public Use
  Company Number: None

PATIENT
  Age: 80 Year
  Sex: Male
  Weight: 73.48 kg

DRUGS (10)
  1. PENTOXIFYLLINE ER [Suspect]
     Active Substance: PENTOXIFYLLINE
     Indication: MYALGIA
     Dosage: ?          QUANTITY:1 DF DOSAGE FORM;?
     Route: 048
     Dates: start: 20190419, end: 20190421
  2. LEVOTHYROXINE SODIUM. [Concomitant]
     Active Substance: LEVOTHYROXINE SODIUM
  3. EZETIMIBE 10MG [Concomitant]
     Active Substance: EZETIMIBE
  4. ASPIRIN. [Concomitant]
     Active Substance: ASPIRIN
  5. METOPROLOL TARTRATE. [Concomitant]
     Active Substance: METOPROLOL TARTRATE
  6. DIAZEPAM. [Concomitant]
     Active Substance: DIAZEPAM
  7. ADVIL [Concomitant]
     Active Substance: IBUPROFEN
  8. CELECOXIB. [Concomitant]
     Active Substance: CELECOXIB
  9. PENTOXIFYLLINE ER [Suspect]
     Active Substance: PENTOXIFYLLINE
     Indication: INTERMITTENT CLAUDICATION
     Dosage: ?          QUANTITY:1 DF DOSAGE FORM;?
     Route: 048
     Dates: start: 20190419, end: 20190421
  10. SIMVASTIN 20MG [Concomitant]

REACTIONS (2)
  - Heart rate decreased [None]
  - Malaise [None]

NARRATIVE: CASE EVENT DATE: 20190421
